FAERS Safety Report 23682333 (Version 2)
Quarter: 2024Q2

REPORT INFORMATION
  Report Type: Spontaneous
  Country: US (occurrence: US)
  Receive Date: 20240328
  Receipt Date: 20240628
  Transmission Date: 20240717
  Serious: No
  Sender: FDA-Public Use
  Company Number: US-SANDOZ-SDZ2024US032829

PATIENT
  Sex: Male

DRUGS (1)
  1. ALBUTEROL SULFATE [Suspect]
     Active Substance: ALBUTEROL SULFATE
     Indication: Chronic obstructive pulmonary disease
     Dosage: 90 UNK, ONCE IN MORNING
     Route: 055

REACTIONS (5)
  - Dysphagia [Unknown]
  - Feeling abnormal [Unknown]
  - Product label issue [Unknown]
  - Product delivery mechanism issue [Unknown]
  - Off label use [Unknown]
